FAERS Safety Report 6955633-5 (Version None)
Quarter: 2010Q3

REPORT INFORMATION
  Report Type: 
  Country: None (occurrence: None)
  Receive Date: 20100830
  Receipt Date: 20100822
  Transmission Date: 20110219
  Serious: Yes (Other)
  Sender: FDA-Public Use
  Company Number: US-PFIZER INC-2010105612

PATIENT
  Sex: Male
  Weight: 87.075 kg

DRUGS (5)
  1. LIPITOR [Suspect]
     Indication: ATRIAL FIBRILLATION
     Dosage: 10MG, DAILY
     Route: 048
     Dates: end: 20100801
  2. TAMSULOSIN HYDROCHLORIDE [Concomitant]
     Indication: CARDIAC DISORDER
     Dosage: 0.5 MG, 1X/DAY
     Route: 048
  3. ISOSORBIDE MONONITRATE [Concomitant]
     Indication: CARDIAC DISORDER
     Dosage: 80 MG, 1X/DAY
     Route: 048
  4. WARFARIN [Concomitant]
     Indication: CARDIAC DISORDER
     Dosage: 5 MG, 1X/DAY
     Route: 048
  5. METOPROLOL [Concomitant]
     Indication: CARDIAC DISORDER
     Dosage: 60 MG, 1X/DAY
     Route: 048

REACTIONS (2)
  - HEART RATE INCREASED [None]
  - HYPERTENSION [None]
